FAERS Safety Report 11052228 (Version 4)
Quarter: 2015Q2

REPORT INFORMATION
  Report Type: Spontaneous
  Country: IT (occurrence: IT)
  Receive Date: 20150421
  Receipt Date: 20150528
  Transmission Date: 20150821
  Serious: Yes (Other)
  Sender: FDA-Public Use
  Company Number: IT-NOVOPROD-445984

PATIENT
  Age: 21 Year
  Sex: Male
  Weight: 83 kg

DRUGS (6)
  1. NORDITROPIN [Suspect]
     Active Substance: SOMATROPIN
     Indication: GROWTH HORMONE DEFICIENCY
     Dosage: 1 MG, QD
     Route: 065
     Dates: start: 201001
  2. NEBID [Concomitant]
     Indication: ANDROGEN REPLACEMENT THERAPY
     Dosage: 1 U, QD (1 VIAL EVERY 3 MONTHS (1000 MG))
     Route: 058
     Dates: start: 20140527
  3. NORDITROPIN [Suspect]
     Active Substance: SOMATROPIN
     Dosage: 0.5 MG, QD
     Route: 065
     Dates: end: 201503
  4. MINIRIN [Concomitant]
     Active Substance: DESMOPRESSIN ACETATE
     Indication: DIABETES INSIPIDUS
     Dosage: 1.00 U (1 SPRAY EVERY DAY)
     Route: 055
     Dates: start: 20050227
  5. EUTIROX [Concomitant]
     Active Substance: LEVOTHYROXINE SODIUM
     Indication: HYPOTHYROIDISM
     Dosage: 100 ?G
     Route: 048
     Dates: start: 20100227
  6. NORDITROPIN [Suspect]
     Active Substance: SOMATROPIN
     Dosage: 1.5 MG, QD
     Route: 065

REACTIONS (3)
  - Germ cell cancer [Not Recovered/Not Resolved]
  - Neoplasm recurrence [Not Recovered/Not Resolved]
  - Incorrect dose administered [Unknown]

NARRATIVE: CASE EVENT DATE: 20150227
